FAERS Safety Report 19261920 (Version 2)
Quarter: 2022Q4

REPORT INFORMATION
  Report Type: Spontaneous
  Country: BE (occurrence: BE)
  Receive Date: 20210516
  Receipt Date: 20221113
  Transmission Date: 20230113
  Serious: Yes (Life-Threatening, Hospitalization, Other)
  Sender: FDA-Public Use
  Company Number: BE-APOTEX-2010AP000157

PATIENT
  Age: 48 Year
  Sex: Female

DRUGS (2)
  1. VENLAFAXINE [Suspect]
     Active Substance: VENLAFAXINE HYDROCHLORIDE
     Indication: Depression
     Dosage: 75 MILLIGRAM, ONCE A DAY
     Route: 065
  2. TRAZODONE HYDROCHLORIDE [Suspect]
     Active Substance: TRAZODONE HYDROCHLORIDE
     Indication: Depression
     Dosage: 200 MILLIGRAM, ONCE A DAY
     Route: 065

REACTIONS (5)
  - Acute hepatic failure [Recovered/Resolved with Sequelae]
  - Encephalopathy [Recovered/Resolved]
  - Hepatitis acute [Recovered/Resolved]
  - Jaundice [Recovered/Resolved]
  - Liver transplant [Recovered/Resolved]
